FAERS Safety Report 15254860 (Version 1)
Quarter: 2018Q3

REPORT INFORMATION
  Report Type: Spontaneous
  Country: US (occurrence: US)
  Receive Date: 20180717
  Receipt Date: 20180717
  Transmission Date: 20181010
  Serious: No
  Sender: FDA-Public Use
  Company Number: None

PATIENT
  Age: 66 Year
  Sex: Female
  Weight: 106.65 kg

DRUGS (8)
  1. MELOXICAM. [Concomitant]
     Active Substance: MELOXICAM
  2. BOSWELLIA [Concomitant]
  3. ZOLPIDEM 5 MG TAB NOR [Suspect]
     Active Substance: ZOLPIDEM TARTRATE
     Indication: INSOMNIA
     Dosage: ?          QUANTITY:30 DF DOSAGE FORM;?
     Route: 048
     Dates: start: 20180717, end: 20180717
  4. VITAMIN C [Concomitant]
     Active Substance: ASCORBIC ACID
  5. VITAMIN B12 [Concomitant]
     Active Substance: CYANOCOBALAMIN
  6. TUMERIC [Concomitant]
     Active Substance: HERBALS\TURMERIC
  7. PAXIL [Concomitant]
     Active Substance: PAROXETINE HYDROCHLORIDE
  8. IRON [Concomitant]
     Active Substance: IRON

REACTIONS (3)
  - Product substitution issue [None]
  - Drug ineffective [None]
  - Restlessness [None]

NARRATIVE: CASE EVENT DATE: 20180717
